FAERS Safety Report 23295761 (Version 1)
Quarter: 2023Q4

REPORT INFORMATION
  Report Type: Spontaneous
  Country: CA (occurrence: None)
  Receive Date: 20231214
  Receipt Date: 20231214
  Transmission Date: 20240109
  Serious: Yes (Other)
  Sender: FDA-Public Use
  Company Number: CA-PFIZER INC-202300442743

PATIENT
  Age: 21 Year
  Sex: Male
  Weight: 45 kg

DRUGS (1)
  1. METHOTREXATE [Suspect]
     Active Substance: METHOTREXATE
     Indication: Product used for unknown indication

REACTIONS (2)
  - Internal haemorrhage [Not Recovered/Not Resolved]
  - Platelet count decreased [Not Recovered/Not Resolved]
